FAERS Safety Report 8364162-6 (Version None)
Quarter: 2012Q2

REPORT INFORMATION
  Report Type: 
  Country: None (occurrence: None)
  Receive Date: 20120516
  Receipt Date: 20120504
  Transmission Date: 20120825
  Serious: Yes (Life-Threatening, Hospitalization)
  Sender: FDA-Public Use
  Company Number: CA-JNJFOC-20120413000

PATIENT
  Sex: Male
  Weight: 73 kg

DRUGS (2)
  1. REMICADE [Suspect]
     Indication: CROHN'S DISEASE
     Dosage: FOR 52 WEEKS
     Route: 042
     Dates: start: 20100101
  2. WARFARIN SODIUM [Concomitant]
     Route: 065

REACTIONS (8)
  - SYNCOPE [None]
  - DIZZINESS [None]
  - FACE INJURY [None]
  - COLOSTOMY CLOSURE [None]
  - FATIGUE [None]
  - JOINT INJURY [None]
  - HAEMATOCHEZIA [None]
  - PYREXIA [None]
